FAERS Safety Report 13265657 (Version 1)
Quarter: 2017Q1

REPORT INFORMATION
  Report Type: Report from Study
  Country: CA (occurrence: CA)
  Receive Date: 20170223
  Receipt Date: 20170223
  Transmission Date: 20170428
  Serious: Yes (Death)
  Sender: FDA-Public Use
  Company Number: CA-JNJFOC-20170220581

PATIENT
  Sex: Male

DRUGS (3)
  1. PURINETHOL [Concomitant]
     Active Substance: MERCAPTOPURINE
     Dosage: X 1 MONTH
     Route: 048
     Dates: start: 20141110
  2. PREDNISONE. [Concomitant]
     Active Substance: PREDNISONE
     Dosage: X 10 DAYS
     Route: 048
     Dates: start: 20160317
  3. SIMPONI [Suspect]
     Active Substance: GOLIMUMAB
     Indication: PRODUCT USED FOR UNKNOWN INDICATION
     Route: 058

REACTIONS (1)
  - Colon cancer [Fatal]
